FAERS Safety Report 5213736-X (Version None)
Quarter: 2007Q1

REPORT INFORMATION
  Report Type: 
  Country: None (occurrence: None)
  Receive Date: 20070119
  Receipt Date: 20070108
  Transmission Date: 20070707
  Serious: Yes (Hospitalization)
  Sender: FDA-Public Use
  Company Number: US-PFIZER INC-2007002659

PATIENT
  Sex: Female
  Weight: 40 kg

DRUGS (23)
  1. DELTA-CORTEF [Suspect]
     Indication: JUVENILE ARTHRITIS
     Dosage: DAILY DOSE:50MG
     Route: 048
  2. METHOTREXATE [Suspect]
     Dates: start: 20051027, end: 20060825
  3. ETANERCEPT [Suspect]
     Indication: JUVENILE ARTHRITIS
     Route: 058
     Dates: start: 20051111, end: 20060826
  4. RISEDRONATE SODIUM [Concomitant]
     Indication: OSTEOPOROSIS
     Dosage: DAILY DOSE:2.5MG
     Dates: start: 20051128
  5. FLURBIPROFEN [Concomitant]
     Dosage: DAILY DOSE:3GRAM
     Dates: start: 20051201, end: 20051227
  6. PRAVASTATIN [Concomitant]
     Indication: HYPERLIPIDAEMIA
     Dosage: DAILY DOSE:45MG
     Dates: start: 20060414, end: 20060608
  7. INSULIN HUMAN [Concomitant]
     Indication: DIABETES MELLITUS
     Route: 058
  8. INSULIN ASPART [Concomitant]
     Indication: DIABETES MELLITUS
  9. AMBROXOL HYDROCHLORIDE [Concomitant]
     Indication: NASOPHARYNGITIS
     Dosage: DAILY DOSE:45MG
     Dates: start: 20051229, end: 20060110
  10. SULFAMETHOXAZOLE [Concomitant]
     Route: 048
  11. ALFACALCIDOL [Concomitant]
     Indication: OSTEOPOROSIS
     Dosage: DAILY DOSE:.5MCG
     Route: 048
     Dates: start: 20051031, end: 20051130
  12. FAMOTIDINE [Concomitant]
     Indication: PROPHYLAXIS
     Dosage: DAILY DOSE:10MG
     Route: 048
     Dates: start: 20051031
  13. MAGNESIUM OXIDE [Concomitant]
     Dosage: DAILY DOSE:750MG
     Route: 045
     Dates: start: 20051031
  14. ESCHERICHIA COLI [Concomitant]
     Indication: HAEMORRHOIDS
     Route: 061
     Dates: start: 20051112, end: 20051130
  15. INDOMETHACIN [Concomitant]
     Indication: JUVENILE ARTHRITIS
     Route: 061
     Dates: start: 20051031, end: 20060113
  16. FOLIC ACID [Concomitant]
     Dates: start: 20051031, end: 20060825
  17. SODIUM PICOSULFATE [Concomitant]
     Indication: CONSTIPATION
     Dates: start: 20050101, end: 20051130
  18. SENNA LEAF [Concomitant]
     Indication: CONSTIPATION
     Dosage: DAILY DOSE:12MG
     Route: 048
     Dates: start: 20051118, end: 20051124
  19. CROTAMITON [Concomitant]
     Route: 061
     Dates: start: 20051123, end: 20051130
  20. AMPHOTERICIN B [Concomitant]
     Dosage: DAILY DOSE:3ML
     Route: 048
     Dates: start: 20051031, end: 20060216
  21. ISOPHANE INSULIN [Concomitant]
     Indication: DIABETES MELLITUS
     Route: 058
  22. GENTAMICIN SULFATE [Concomitant]
     Dates: start: 20051104, end: 20051130
  23. SALICYLAMIDE [Concomitant]
     Indication: NASOPHARYNGITIS
     Dosage: DAILY DOSE:3GRAM
     Dates: start: 20051223, end: 20051227

REACTIONS (5)
  - CONTUSION [None]
  - COUGH [None]
  - CYTOMEGALOVIRUS INFECTION [None]
  - PNEUMOCYSTIS JIROVECI PNEUMONIA [None]
  - PYREXIA [None]
